FAERS Safety Report 9506175 (Version 1)
Quarter: 2013Q1

REPORT INFORMATION
  Report Type: Spontaneous
  Country: US (occurrence: None)
  Receive Date: 20130304
  Receipt Date: 20130304
  Transmission Date: 20140127
  Serious: Yes (Other)
  Sender: FDA-Public Use
  Company Number: 201212016

PATIENT
  Age: 72 Year
  Sex: Female
  Weight: 72.58 kg

DRUGS (15)
  1. XIAFLEX [Suspect]
     Indication: DUPUYTREN^S CONTRACTURE
     Dosage: INTRALESIONAL
     Dates: start: 20120229, end: 20120229
  2. TRAMADOL (TRAMADOL) [Concomitant]
  3. CELEBREX (CELECOXIB) [Concomitant]
  4. GABAPENTIN (GABAPENTIN) [Concomitant]
  5. ESTRADIOL (ESTRADIOL) [Concomitant]
  6. SIMVASTATIN (SIMVASTATIN) [Concomitant]
  7. VICODIN (PARACETAMOL) [Concomitant]
  8. B COMPLEX VITAMINS (PYRIDOXINE HYDROCHLORIDE) [Concomitant]
  9. CALCIUM CARBONATE-VITAMIN D (COLECALCIFEROL) [Concomitant]
  10. FISH OIL OMEGA-3 FATTY ACIDS (FISH OIL) [Concomitant]
  11. FOLIC ACID (FOLIC ACID) [Concomitant]
  12. VITAMIN E (TOCOPHEROL) [Concomitant]
  13. MULTIVITAMIN (ASCORBIC ACID) [Concomitant]
  14. ASPIRIN EC (ACETYLSALICYLIC ACID) [Concomitant]
  15. REQUIP (ROPINIROLE HYDROCHLORIDE) [Concomitant]

REACTIONS (3)
  - Procedural pain [None]
  - Dupuytren^s contracture [None]
  - Pain in extremity [None]
